FAERS Safety Report 7436648-X (Version None)
Quarter: 2011Q2

REPORT INFORMATION
  Report Type: 
  Country: None (occurrence: None)
  Receive Date: 20110426
  Receipt Date: 20110414
  Transmission Date: 20111010
  Serious: Yes (Other)
  Sender: FDA-Public Use
  Company Number: US-JNJFOC-20110407238

PATIENT
  Sex: Female
  Weight: 53.07 kg

DRUGS (6)
  1. DURAGESIC-100 [Suspect]
     Route: 062
  2. DURAGESIC-100 [Suspect]
     Indication: BACK DISORDER
     Route: 062
  3. FENTANYL-100 [Suspect]
     Indication: SCOLIOSIS
     Route: 062
  4. DURAGESIC-100 [Suspect]
     Indication: SCOLIOSIS
     Route: 062
  5. DURAGESIC-100 [Suspect]
     Route: 062
  6. FENTANYL-100 [Suspect]
     Indication: BACK DISORDER
     Route: 062

REACTIONS (2)
  - BODY HEIGHT DECREASED [None]
  - INADEQUATE ANALGESIA [None]
